FAERS Safety Report 12182800 (Version 1)
Quarter: 2016Q1

REPORT INFORMATION
  Report Type: Spontaneous
  Country: US (occurrence: US)
  Receive Date: 20160316
  Receipt Date: 20160316
  Transmission Date: 20160526
  Serious: No
  Sender: FDA-Public Use
  Company Number: US-BAYER-2016-051485

PATIENT
  Age: 53 Year
  Sex: Female
  Weight: 86.17 kg

DRUGS (4)
  1. CALCIUM [Concomitant]
     Active Substance: CALCIUM
  2. FISH OIL [Concomitant]
     Active Substance: FISH OIL
  3. ALEVE [Suspect]
     Active Substance: NAPROXEN SODIUM
     Indication: TOOTHACHE
     Dosage: 2 DF, PRN
     Route: 048
     Dates: end: 20160314
  4. BAYER LOW DOSE [Concomitant]
     Active Substance: ASPIRIN
     Indication: ISCHAEMIC HEART DISEASE PROPHYLAXIS

REACTIONS (3)
  - Abdominal pain upper [Not Recovered/Not Resolved]
  - Vomiting [Recovered/Resolved]
  - Product use issue [None]

NARRATIVE: CASE EVENT DATE: 20160314
